FAERS Safety Report 9472833 (Version 1)
Quarter: 2013Q3

REPORT INFORMATION
  Report Type: Report from Study
  Country: US (occurrence: US)
  Receive Date: 20130823
  Receipt Date: 20130823
  Transmission Date: 20140515
  Serious: Yes (Hospitalization)
  Sender: FDA-Public Use
  Company Number: US-VERTEX PHARMACEUTICALS INC-2013-008997

PATIENT
  Age: 49 Year
  Sex: Male

DRUGS (4)
  1. VX-950 (TELAPREVIR) [Suspect]
     Indication: HEPATITIS C
     Dosage: 2 DF, TID
     Route: 048
     Dates: start: 20130430
  2. VX-950 (TELAPREVIR) [Suspect]
     Dosage: UNK
  3. PEGASYS [Suspect]
     Indication: HEPATITIS C
     Dosage: UNK
     Dates: start: 20130430
  4. RIBAVIRIN [Suspect]
     Indication: HEPATITIS C
     Dosage: UNK
     Dates: start: 20130430

REACTIONS (4)
  - Cellulitis staphylococcal [Recovered/Resolved]
  - Scratch [Recovered/Resolved]
  - Rash [Recovered/Resolved]
  - Pruritus [Not Recovered/Not Resolved]
